FAERS Safety Report 7963094-2 (Version None)
Quarter: 2011Q4

REPORT INFORMATION
  Report Type: 
  Country: None (occurrence: None)
  Receive Date: 20111207
  Receipt Date: 20111202
  Transmission Date: 20120403
  Serious: Yes (Other)
  Sender: FDA-Public Use
  Company Number: US-ROCHE-1010963

PATIENT
  Sex: Female
  Weight: 91.708 kg

DRUGS (5)
  1. CARDIZEM [Concomitant]
     Route: 048
  2. MEVACOR [Concomitant]
     Route: 048
  3. ZELBORAF [Suspect]
     Indication: MALIGNANT MELANOMA
     Route: 048
     Dates: start: 20111020, end: 20111030
  4. METOPROLOL TARTRATE [Concomitant]
     Indication: BLOOD PRESSURE
     Route: 048
  5. HYDROCHLOROTHIAZIDE [Concomitant]
     Indication: BLOOD PRESSURE
     Dosage: 50/12.5MG
     Route: 048

REACTIONS (12)
  - DYSPNOEA [None]
  - RASH MACULAR [None]
  - URTICARIA [None]
  - ARTHRALGIA [None]
  - CHEST PAIN [None]
  - DECREASED APPETITE [None]
  - NAUSEA [None]
  - SKIN PAPILLOMA [None]
  - DYSPHONIA [None]
  - PRURITUS [None]
  - CHILLS [None]
  - FATIGUE [None]
